FAERS Safety Report 6851128-8 (Version None)
Quarter: 2010Q3

REPORT INFORMATION
  Report Type: 
  Country: None (occurrence: None)
  Receive Date: 20100716
  Receipt Date: 20071025
  Transmission Date: 20110219
  Serious: No
  Sender: FDA-Public Use
  Company Number: US-PFIZER INC-2007091626

PATIENT
  Sex: Male
  Weight: 97.727 kg

DRUGS (8)
  1. CHANTIX [Suspect]
     Indication: SMOKING CESSATION THERAPY
     Dates: start: 20070101
  2. LIPITOR [Concomitant]
  3. PREVACID [Concomitant]
  4. GABAPENTIN [Concomitant]
  5. WARFARIN SODIUM [Concomitant]
  6. BUSPIRONE [Concomitant]
  7. HYDROCHLOROTHIAZIDE [Concomitant]
  8. MECLIZINE [Concomitant]

REACTIONS (3)
  - ABDOMINAL DISTENSION [None]
  - ABDOMINAL PAIN UPPER [None]
  - CONSTIPATION [None]
